FAERS Safety Report 19759681 (Version 1)
Quarter: 2021Q3

REPORT INFORMATION
  Report Type: Spontaneous
  Country: CA (occurrence: CA)
  Receive Date: 20210830
  Receipt Date: 20210830
  Transmission Date: 20211014
  Serious: Yes (Other)
  Sender: FDA-Public Use
  Company Number: CA-AUROBINDO-AUR-APL-2021-035961

PATIENT
  Age: 46 Year
  Sex: Female

DRUGS (11)
  1. CLARITHROMYCIN. [Suspect]
     Active Substance: CLARITHROMYCIN
     Indication: PEPTIC ULCER
     Dosage: UNK
     Route: 065
  2. METRONIDAZOLE. [Concomitant]
     Active Substance: METRONIDAZOLE
     Indication: PEPTIC ULCER
     Dosage: UNK
     Route: 065
  3. AMOXICILLIN. [Suspect]
     Active Substance: AMOXICILLIN
     Indication: PEPTIC ULCER
     Dosage: UNK
     Route: 065
  4. ACRIVASTINE [Concomitant]
     Active Substance: ACRIVASTINE
     Indication: HYPERSENSITIVITY
     Dosage: UNK
     Route: 065
  5. PREDNISONE. [Concomitant]
     Active Substance: PREDNISONE
     Indication: HYPERSENSITIVITY
     Dosage: 50 MILLIGRAM
     Route: 048
  6. REACTINE [Concomitant]
     Indication: HYPERSENSITIVITY
     Dosage: 1 DOSAGE FORM, ONCE A DAY
     Route: 048
  7. SYNTHROID [Concomitant]
     Active Substance: LEVOTHYROXINE SODIUM
     Indication: HYPERSENSITIVITY
     Dosage: UNK
     Route: 048
  8. ACRIVASTINE [Concomitant]
     Active Substance: ACRIVASTINE
     Dosage: UNK
     Route: 048
  9. SOLU?MEDROL [Concomitant]
     Active Substance: METHYLPREDNISOLONE SODIUM SUCCINATE
     Indication: PRODUCT USED FOR UNKNOWN INDICATION
     Dosage: UNK
     Route: 065
  10. RABEPRAZOLE [Suspect]
     Active Substance: RABEPRAZOLE
     Indication: PEPTIC ULCER
     Dosage: 20 MILLIGRAM
     Route: 048
  11. RANITIDINE HYDROCHLORIDE. [Concomitant]
     Active Substance: RANITIDINE HYDROCHLORIDE
     Indication: HYPERSENSITIVITY
     Dosage: UNK
     Route: 048

REACTIONS (9)
  - Seborrhoeic keratosis [Unknown]
  - Macule [Unknown]
  - Pruritus [Unknown]
  - Erythema [Unknown]
  - Angioedema [Unknown]
  - Urticaria [Unknown]
  - Pharyngeal swelling [Unknown]
  - Throat tightness [Unknown]
  - Product use in unapproved indication [Unknown]
